FAERS Safety Report 6300811-1 (Version None)
Quarter: 2009Q3

REPORT INFORMATION
  Report Type: 
  Country: None (occurrence: None)
  Receive Date: 20090807
  Receipt Date: 20090731
  Transmission Date: 20100115
  Serious: Yes (Other)
  Sender: FDA-Public Use
  Company Number: PL-BRISTOL-MYERS SQUIBB COMPANY-14728802

PATIENT

DRUGS (1)
  1. REYATAZ [Suspect]
     Dosage: COURSE:1
     Route: 064

REACTIONS (1)
  - TRISOMY 21 [None]
